FAERS Safety Report 19536228 (Version 1)
Quarter: 2021Q3

REPORT INFORMATION
  Report Type: Spontaneous
  Country: US (occurrence: US)
  Receive Date: 20210714
  Receipt Date: 20210714
  Transmission Date: 20211014
  Serious: No
  Sender: FDA-Public Use
  Company Number: None

PATIENT
  Age: 62 Year
  Sex: Male

DRUGS (2)
  1. OXALIPLATIN. [Suspect]
     Active Substance: OXALIPLATIN
     Indication: NEOPLASM MALIGNANT
  2. LEUCOVORIN. [Suspect]
     Active Substance: LEUCOVORIN

REACTIONS (6)
  - Feeling hot [None]
  - Unresponsive to stimuli [None]
  - Pruritus [None]
  - Fall [None]
  - Drooling [None]
  - Dizziness [None]

NARRATIVE: CASE EVENT DATE: 20210713
